FAERS Safety Report 4362342-8 (Version None)
Quarter: 2004Q2

REPORT INFORMATION
  Report Type: 
  Country: None (occurrence: None)
  Receive Date: 20040518
  Receipt Date: 20040505
  Transmission Date: 20050107
  Serious: Yes (Death)
  Sender: FDA-Public Use
  Company Number: USA-2003-0005189

PATIENT
  Age: 38 Year
  Sex: Male
  Weight: 90.7 kg

DRUGS (7)
  1. OXYCONTIN [Suspect]
     Indication: PAIN
     Dosage: 80 MG
  2. CARBAMAZEPINE [Suspect]
  3. AMBIEN [Concomitant]
  4. CELEBREX [Concomitant]
  5. CELEXA [Concomitant]
  6. NEURONTIN(BABAPENTIN) [Concomitant]
  7. ELAVIL [Concomitant]

REACTIONS (4)
  - ACCIDENT [None]
  - DRUG TOXICITY [None]
  - MOUTH CYST [None]
  - TOOTH IMPACTED [None]
